FAERS Safety Report 7590802-5 (Version None)
Quarter: 2011Q3

REPORT INFORMATION
  Report Type: 
  Country: None (occurrence: None)
  Receive Date: 20110705
  Receipt Date: 20110704
  Transmission Date: 20111222
  Serious: Yes (Hospitalization, Disabling)
  Sender: FDA-Public Use
  Company Number: CH-PFIZER INC-2011117965

PATIENT
  Age: 27 Year
  Sex: Female

DRUGS (5)
  1. CLOZAPINE [Suspect]
     Dosage: 500 MG, UNK
     Route: 048
     Dates: start: 20101112
  2. CLOZAPINE [Suspect]
     Dosage: 500 MG, UNK
     Route: 048
     Dates: start: 20081001, end: 20090301
  3. VALPROATE SODIUM [Concomitant]
     Dosage: 1000 MG, 1X/DAY
     Route: 042
  4. DEPO-PROVERA [Suspect]
     Indication: CONTRACEPTION
     Dosage: 150 MG, UNK
     Route: 030
     Dates: start: 20090324, end: 20110118
  5. ABILIFY [Suspect]
     Dosage: 10 MG, 1X/DAY
     Route: 048
     Dates: start: 20090515, end: 20110120

REACTIONS (1)
  - CEREBRAL INFARCTION [None]
